FAERS Safety Report 15749589 (Version 1)
Quarter: 2018Q4

REPORT INFORMATION
  Report Type: Spontaneous
  Country: JP (occurrence: JP)
  Receive Date: 20181221
  Receipt Date: 20181221
  Transmission Date: 20190205
  Serious: Yes (Death)
  Sender: FDA-Public Use
  Company Number: JP-MALLINCKRODT-T201806741

PATIENT
  Age: 69 Year
  Sex: Male
  Weight: 51 kg

DRUGS (22)
  1. METHADONE [Suspect]
     Active Substance: METHADONE HYDROCHLORIDE
     Dosage: 90 MG, ONE TIME DOSE (30 MG)
     Route: 048
     Dates: start: 20150107, end: 20150113
  2. OXINORM [Concomitant]
     Indication: ANALGESIC THERAPY
     Dosage: 30-60 MG, PRN
     Route: 048
     Dates: start: 20141211
  3. GASLON [Concomitant]
     Active Substance: IRSOGLADINE MALEATE
     Indication: PROPHYLAXIS
     Dosage: 4 MG, UNK
     Route: 048
     Dates: end: 20150124
  4. CALONAL [Concomitant]
     Active Substance: ACETAMINOPHEN
     Indication: ANALGESIC THERAPY
     Dosage: 1800 MG, UNK
     Route: 048
     Dates: end: 20141219
  5. AMITIZA [Concomitant]
     Active Substance: LUBIPROSTONE
     Indication: PROPHYLAXIS
     Dosage: 24 UNK, UNK
     Route: 048
     Dates: end: 20150308
  6. METHADONE [Suspect]
     Active Substance: METHADONE HYDROCHLORIDE
     Dosage: 60 MG, ONE TIME DOSE (20 MG)
     Route: 048
     Dates: start: 20141217, end: 20150106
  7. FENTOS [Concomitant]
     Active Substance: FENTANYL
     Dosage: 2 MG, UNK
     Route: 062
     Dates: start: 20150218, end: 20150223
  8. P GUARD [Concomitant]
     Active Substance: MORPHINE SULFATE
     Indication: ANALGESIC THERAPY
     Dosage: 90 MG, UNK
     Route: 048
     Dates: start: 20150223, end: 20150308
  9. METHADONE [Suspect]
     Active Substance: METHADONE HYDROCHLORIDE
     Indication: CANCER PAIN
     Dosage: 45 MG, ONE TIME DOSE (15 MG)
     Route: 048
     Dates: start: 20141210, end: 20141216
  10. CYMBALTA [Concomitant]
     Active Substance: DULOXETINE HYDROCHLORIDE
     Indication: ANALGESIC THERAPY
     Dosage: 20 MG, UNK
     Route: 048
     Dates: end: 20141225
  11. MAGMITT [Concomitant]
     Active Substance: MAGNESIUM OXIDE
     Indication: PROPHYLAXIS
     Dosage: 1980 MG, UNK
     Route: 048
     Dates: end: 20150308
  12. OPSO [Concomitant]
     Active Substance: MORPHINE HYDROCHLORIDE
     Indication: ANALGESIC THERAPY
     Dosage: 40 MG, PRN
     Route: 048
     Dates: start: 20141210
  13. OXIFAST [Concomitant]
     Active Substance: OXYCODONE
     Indication: ANALGESIC THERAPY
     Dosage: 50 MG, PRN
     Route: 051
     Dates: start: 20150111
  14. METHADONE [Suspect]
     Active Substance: METHADONE HYDROCHLORIDE
     Dosage: 90 MG, ONE TIME DOSE (30 MG)
     Route: 048
     Dates: start: 20150213, end: 20150309
  15. ALLEGRA [Concomitant]
     Active Substance: FEXOFENADINE HYDROCHLORIDE
     Indication: PRODUCT USED FOR UNKNOWN INDICATION
     Dosage: 120 MG, UNK
     Route: 048
     Dates: end: 20150124
  16. CELECOX [Concomitant]
     Active Substance: CELECOXIB
     Indication: ANALGESIC THERAPY
     Dosage: 400 MG, UNK
     Route: 048
     Dates: end: 20150106
  17. LAGNOS [Concomitant]
     Indication: PROPHYLAXIS
     Dosage: 48.15 G, UNK
     Route: 048
     Dates: end: 20150308
  18. HYPEN [Concomitant]
     Indication: ANALGESIC THERAPY
     Dosage: 400 MG, UNK
     Route: 048
     Dates: start: 20150210, end: 20150308
  19. KETALAR [Concomitant]
     Active Substance: KETAMINE HYDROCHLORIDE
     Indication: ANALGESIC THERAPY
     Dosage: 100 MG, UNK
     Route: 051
     Dates: start: 20150311, end: 20150326
  20. METHADONE [Suspect]
     Active Substance: METHADONE HYDROCHLORIDE
     Dosage: 120 MG, ONE TIME DOSE (40 MG)
     Route: 048
     Dates: start: 20150114, end: 20150212
  21. FENTOS [Concomitant]
     Active Substance: FENTANYL
     Indication: ANALGESIC THERAPY
     Dosage: 4 MG, UNK
     Route: 062
     Dates: start: 20150216, end: 20150218
  22. LANSOPRAZOLE. [Concomitant]
     Active Substance: LANSOPRAZOLE
     Indication: PROPHYLAXIS
     Dosage: 15 MG, UNK
     Route: 048
     Dates: end: 20150308

REACTIONS (1)
  - Interstitial lung disease [Fatal]

NARRATIVE: CASE EVENT DATE: 20150306
